FAERS Safety Report 10219383 (Version 1)
Quarter: 2014Q2

REPORT INFORMATION
  Report Type: Spontaneous
  Country: US (occurrence: US)
  Receive Date: 20140605
  Receipt Date: 20140605
  Transmission Date: 20141212
  Serious: Yes (Other)
  Sender: FDA-Public Use
  Company Number: US-INCYTE CORPORATION-2014IN001507

PATIENT
  Sex: Male
  Weight: 78 kg

DRUGS (6)
  1. JAKAFI [Suspect]
     Indication: MYELOFIBROSIS
     Dosage: 5 MG, BID
     Route: 048
  2. REVLIMID [Concomitant]
  3. ASPIRIN LOW [Concomitant]
  4. HYDROCHLOROTHIAZID [Concomitant]
  5. METOPROLOL TARTRATE [Concomitant]
  6. HYDROXYUREA [Concomitant]

REACTIONS (2)
  - Haemolytic anaemia [Unknown]
  - Red blood cell count decreased [Unknown]
